FAERS Safety Report 14156579 (Version 2)
Quarter: 2018Q1

REPORT INFORMATION
  Report Type: Report from Study
  Country: MX (occurrence: MX)
  Receive Date: 20171103
  Receipt Date: 20180223
  Transmission Date: 20180508
  Serious: Yes (Hospitalization, Other)
  Sender: FDA-Public Use
  Company Number: PHHY2017MX161021

PATIENT
  Sex: Female

DRUGS (2)
  1. COSENTYX [Suspect]
     Active Substance: SECUKINUMAB
     Indication: PSORIATIC ARTHROPATHY
     Dosage: 2 DF (150MG/ML), QMO
     Route: 065
     Dates: start: 2017
  2. COSENTYX [Suspect]
     Active Substance: SECUKINUMAB
     Indication: PSORIASIS
     Dosage: 150 MG, QMO
     Route: 065

REACTIONS (10)
  - Diabetes mellitus [Unknown]
  - Renal injury [Unknown]
  - Discomfort [Unknown]
  - Depression [Not Recovered/Not Resolved]
  - Liver injury [Unknown]
  - Psoriasis [Unknown]
  - Bone disorder [Not Recovered/Not Resolved]
  - Pigmentation disorder [Recovered/Resolved with Sequelae]
  - Renal disorder [Unknown]
  - Arthritis [Not Recovered/Not Resolved]
